FAERS Safety Report 16189094 (Version 1)
Quarter: 2019Q2

REPORT INFORMATION
  Report Type: Spontaneous
  Country: US (occurrence: US)
  Receive Date: 20190412
  Receipt Date: 20190412
  Transmission Date: 20190711
  Serious: No
  Sender: FDA-Public Use
  Company Number: US-TEVA-2019-US-1033814

PATIENT
  Sex: Male

DRUGS (1)
  1. ENOXAPARIN SODIUM INJECTION [Suspect]
     Active Substance: ENOXAPARIN SODIUM
     Indication: PULMONARY EMBOLISM
     Dosage: DOSE STRENGTH: 150 MG/1 ML
     Route: 065
     Dates: start: 201811

REACTIONS (2)
  - Injection site bruising [Unknown]
  - Injection site atrophy [Unknown]

NARRATIVE: CASE EVENT DATE: 201811
